FAERS Safety Report 15412764 (Version 19)
Quarter: 2019Q4

REPORT INFORMATION
  Report Type: Report from Study
  Country: CA (occurrence: CA)
  Receive Date: 20180921
  Receipt Date: 20191001
  Transmission Date: 20200122
  Serious: Yes (Hospitalization, Other)
  Sender: FDA-Public Use
  Company Number: PHHY2016CA026791

PATIENT
  Age: 68 Year
  Sex: Male

DRUGS (16)
  1. BISOPROLOL [Concomitant]
     Active Substance: BISOPROLOL
     Dosage: 5 MG, OT (PILL DIE)
     Route: 048
  2. TOLOXIN [Concomitant]
     Active Substance: DIGOXIN
     Indication: CARDIAC DISORDER
     Dosage: UNK, BID
     Route: 048
  3. PREVACID [Concomitant]
     Active Substance: LANSOPRAZOLE
     Indication: PRODUCT USED FOR UNKNOWN INDICATION
     Dosage: 30 MG, QD
     Route: 065
  4. TOLOXIN [Concomitant]
     Active Substance: DIGOXIN
     Dosage: UNK (DIE)
     Route: 048
  5. APO FUROSEMID [Concomitant]
     Dosage: 40 MG, OT (DIE)
     Route: 048
  6. SANDOSTATIN LAR DEPOT [Suspect]
     Active Substance: OCTREOTIDE ACETATE
     Indication: ACROMEGALY
     Dosage: 20 MG, QMO (EVERY 4 WEEKS)
     Route: 030
     Dates: start: 20160128
  7. APO FUROSEMID [Concomitant]
     Indication: BLOOD PRESSURE ABNORMAL
     Dosage: 40 MG, BID
     Route: 048
  8. SIGNIFOR LAR [Suspect]
     Active Substance: PASIREOTIDE
     Indication: ACROMEGALY
     Dosage: 60 MG, QMO (EVERY 4 WEEKS)
     Route: 065
     Dates: start: 200812
  9. APO-OXAZEPAM [Concomitant]
     Active Substance: OXAZEPAM
     Indication: INSOMNIA
     Dosage: 30 MG, QHS PRN
     Route: 048
  10. BENEPROTEIN [Concomitant]
     Active Substance: DIETARY SUPPLEMENT
     Indication: PRODUCT USED FOR UNKNOWN INDICATION
     Dosage: 227 G227 G (2 MEASURES / DAY), UNK
     Route: 065
  11. PERINDOPRIL [Concomitant]
     Active Substance: PERINDOPRIL
     Indication: PRODUCT USED FOR UNKNOWN INDICATION
     Dosage: 4 MG (1 CO), QD
     Route: 065
  12. SIGNIFOR LAR [Suspect]
     Active Substance: PASIREOTIDE
     Dosage: 20 MG, QMO
     Route: 030
     Dates: start: 20160128
  13. BISOPROLOL [Concomitant]
     Active Substance: BISOPROLOL
     Indication: CARDIAC DISORDER
     Dosage: 5 MG, BID
     Route: 048
     Dates: start: 1954
  14. LANTUS [Concomitant]
     Active Substance: INSULIN GLARGINE
     Indication: PRODUCT USED FOR UNKNOWN INDICATION
     Dosage: UNK, DECREASED TO 4 UNITS
     Route: 065
     Dates: end: 20160227
  15. JANUMET [Concomitant]
     Active Substance: METFORMIN HYDROCHLORIDE\SITAGLIPTIN PHOSPHATE
     Indication: DIABETES MELLITUS
     Dosage: 850 MG, BID
     Route: 048
     Dates: start: 2017
  16. GLICLAZIDE [Concomitant]
     Active Substance: GLICLAZIDE
     Indication: PRODUCT USED FOR UNKNOWN INDICATION
     Dosage: UNK
     Route: 065
     Dates: end: 20160227

REACTIONS (25)
  - Pain [Unknown]
  - Discomfort [Unknown]
  - Nausea [Unknown]
  - Blood pressure systolic increased [Unknown]
  - Rash [Unknown]
  - Bradycardia [Unknown]
  - Constipation [Unknown]
  - Cardiac disorder [Unknown]
  - Wound [Unknown]
  - Emphysema [Unknown]
  - Vomiting [Unknown]
  - Dizziness [Unknown]
  - Weight decreased [Unknown]
  - Fall [Unknown]
  - Osteoarthritis [Unknown]
  - Headache [Unknown]
  - Blood pressure diastolic decreased [Unknown]
  - Arthralgia [Unknown]
  - Blood glucose decreased [Recovering/Resolving]
  - Asthenia [Unknown]
  - Rib fracture [Unknown]
  - Musculoskeletal pain [Unknown]
  - Labyrinthitis [Unknown]
  - Hypersensitivity [Unknown]
  - Body temperature decreased [Unknown]

NARRATIVE: CASE EVENT DATE: 20161007
